FAERS Safety Report 7393660-7 (Version None)
Quarter: 2011Q2

REPORT INFORMATION
  Report Type: 
  Country: None (occurrence: None)
  Receive Date: 20110405
  Receipt Date: 20090625
  Transmission Date: 20111010
  Serious: Yes (Hospitalization)
  Sender: FDA-Public Use
  Company Number: US-BAYER-200924262NA

PATIENT
  Sex: Female
  Weight: 64.853 kg

DRUGS (6)
  1. TRASYLOL [Suspect]
     Indication: BENIGN TUMOUR EXCISION
     Route: 042
     Dates: start: 20061007
  2. ANCEF [Concomitant]
     Dosage: 2 G, UNK
     Route: 042
     Dates: start: 20061007
  3. TRASYLOL [Suspect]
     Indication: CARDIAC MYXOMA
  4. LASIX [Concomitant]
     Dosage: 20 MG, UNK
     Route: 042
     Dates: start: 20061006
  5. METOPROLOL [Concomitant]
     Dosage: DAILY DOSE 50 MG
     Route: 048
  6. HEPARIN SODIUM [Concomitant]
     Dosage: 15 UNITS/HR
     Route: 042
     Dates: start: 20061006

REACTIONS (12)
  - RENAL FAILURE [None]
  - RENAL IMPAIRMENT [None]
  - EMOTIONAL DISTRESS [None]
  - ANHEDONIA [None]
  - UNEVALUABLE EVENT [None]
  - PAIN [None]
  - INJURY [None]
  - STRESS [None]
  - RENAL INJURY [None]
  - CARDIOGENIC SHOCK [None]
  - FEAR [None]
  - ANXIETY [None]
